FAERS Safety Report 9461501 (Version 3)
Quarter: 2014Q2

REPORT INFORMATION
  Report Type: Report from Study
  Country: TH (occurrence: TH)
  Receive Date: 20130816
  Receipt Date: 20140528
  Transmission Date: 20141212
  Serious: Yes (Death, Life-Threatening, Hospitalization)
  Sender: FDA-Public Use
  Company Number: PHHY2013TH087879

PATIENT
  Sex: Female
  Weight: 53 kg

DRUGS (1)
  1. TASIGNA [Suspect]
     Indication: CHRONIC MYELOID LEUKAEMIA
     Route: 048
     Dates: end: 201212

REACTIONS (4)
  - Pneumonia [Fatal]
  - Dyspnoea [Fatal]
  - Respiratory failure [Unknown]
  - Drug ineffective [Unknown]
